FAERS Safety Report 13785763 (Version 3)
Quarter: 2017Q3

REPORT INFORMATION
  Report Type: Spontaneous
  Country: BR (occurrence: BR)
  Receive Date: 20170725
  Receipt Date: 20170908
  Transmission Date: 20171127
  Serious: Yes (Hospitalization, Other)
  Sender: FDA-Public Use
  Company Number: BR-AUROBINDO-AUR-APL-2017-37321

PATIENT
  Age: 14 Year
  Sex: Female
  Weight: 65 kg

DRUGS (2)
  1. AMOXICILLIN CAPSULES USP 500 MG [Suspect]
     Active Substance: AMOXICILLIN
     Indication: TONSILLITIS
     Dosage: 500 MG, EVERY 12 HOURS
     Route: 048
     Dates: start: 20170710, end: 20170710
  2. EXODUS                             /01588502/ [Concomitant]
     Indication: PANIC DISORDER
     Dosage: 1 DF, DAILY
     Route: 048

REACTIONS (8)
  - Pharyngeal oedema [Recovered/Resolved]
  - Hypoaesthesia [Recovered/Resolved]
  - Erythema [Recovered/Resolved]
  - Ear swelling [Recovered/Resolved]
  - Pruritus [Recovered/Resolved]
  - Product substitution issue [Unknown]
  - Oedema mouth [Recovered/Resolved]
  - Face oedema [Recovered/Resolved]

NARRATIVE: CASE EVENT DATE: 201707
